FAERS Safety Report 11045576 (Version 1)
Quarter: 2015Q2

REPORT INFORMATION
  Report Type: Spontaneous
  Country: JP (occurrence: JP)
  Receive Date: 20150417
  Receipt Date: 20150417
  Transmission Date: 20150821
  Serious: Yes (Hospitalization, Disabling)
  Sender: FDA-Public Use
  Company Number: JP-TAKEDA-TCI2013A03293

PATIENT
  Age: 83 Year
  Sex: Male
  Weight: 42.5 kg

DRUGS (3)
  1. GLIMEPIRIDE. [Concomitant]
     Active Substance: GLIMEPIRIDE
     Indication: BLOOD GLUCOSE ABNORMAL
     Dosage: 1 MG, QD
     Route: 048
     Dates: start: 20110623
  2. VOGLIBOSE [Concomitant]
     Active Substance: VOGLIBOSE
     Indication: BLOOD GLUCOSE ABNORMAL
     Dosage: 0.3 MG, TID
     Route: 048
     Dates: start: 20100728
  3. NESINA [Suspect]
     Active Substance: ALOGLIPTIN BENZOATE
     Indication: BLOOD GLUCOSE ABNORMAL
     Dosage: 12.5 MG, QD
     Route: 048
     Dates: start: 20121121, end: 20130529

REACTIONS (5)
  - Renal impairment [Recovered/Resolved with Sequelae]
  - Weight decreased [Not Recovered/Not Resolved]
  - Gastritis erosive [None]
  - Cerebrovascular disorder [None]
  - Renal cyst [None]

NARRATIVE: CASE EVENT DATE: 20130522
